FAERS Safety Report 9300340 (Version 1)
Quarter: 2013Q2

REPORT INFORMATION
  Report Type: Spontaneous
  Country: US (occurrence: US)
  Receive Date: 20130521
  Receipt Date: 20130521
  Transmission Date: 20140414
  Serious: Yes (Other)
  Sender: FDA-Public Use
  Company Number: US-PFIZER INC-2013154455

PATIENT
  Age: 54 Year
  Sex: Male
  Weight: 86.17 kg

DRUGS (1)
  1. CHANTIX [Suspect]
     Indication: SMOKING CESSATION THERAPY
     Dosage: UNK
     Dates: start: 201305

REACTIONS (2)
  - Blood urine present [Not Recovered/Not Resolved]
  - Oropharyngeal pain [Not Recovered/Not Resolved]
